FAERS Safety Report 7942018-8 (Version None)
Quarter: 2011Q4

REPORT INFORMATION
  Report Type: 
  Country: None (occurrence: None)
  Receive Date: 20111128
  Receipt Date: 20111117
  Transmission Date: 20120403
  Serious: Yes (Hospitalization)
  Sender: FDA-Public Use
  Company Number: US-BAYER-201031060NA

PATIENT
  Age: 21 Year
  Sex: Female
  Weight: 63 kg

DRUGS (6)
  1. HYDROXYZINE [Concomitant]
     Indication: PRURITUS
     Route: 048
  2. ZANTAC [Concomitant]
     Indication: HYPERCHLORHYDRIA
     Route: 048
  3. SINGULAIR [Concomitant]
     Indication: ASTHMA
     Dosage: 10 MG, QD
     Route: 048
  4. TUSSIONEX [Concomitant]
     Indication: ANTITUSSIVE THERAPY
     Route: 048
  5. YAZ [Suspect]
     Indication: PREMENSTRUAL SYNDROME
     Route: 048
     Dates: start: 20070801, end: 20100101
  6. ZITHROMAX [Concomitant]
     Route: 048

REACTIONS (5)
  - BILIARY COLIC [None]
  - INJURY [None]
  - CHOLECYSTITIS CHRONIC [None]
  - CHOLECYSTECTOMY [None]
  - PAIN [None]
